FAERS Safety Report 7394457-4 (Version None)
Quarter: 2011Q2

REPORT INFORMATION
  Report Type: 
  Country: None (occurrence: None)
  Receive Date: 20110405
  Receipt Date: 20110329
  Transmission Date: 20111010
  Serious: Yes (Hospitalization, Other)
  Sender: FDA-Public Use
  Company Number: US-PFIZER INC-2011053843

PATIENT
  Sex: Male
  Weight: 61.7 kg

DRUGS (19)
  1. OMEPRAZOLE [Concomitant]
     Dosage: 20 MG, 2X/DAY
  2. MAGNESIUM [Concomitant]
     Dosage: 500 MG, 1X/DAY
     Route: 048
  3. AMLODIPINE [Concomitant]
     Dosage: 10/20 DAILY
  4. ZOFRAN [Concomitant]
     Dosage: 8MG AS NEEDED
  5. MSIR [Concomitant]
     Dosage: 15 MG AS NEEDED
  6. LOVENOX [Concomitant]
     Dosage: DAILY
  7. COUMADIN [Concomitant]
     Dosage: 2.5 MG, 1X/DAY
  8. RESTORIL [Concomitant]
     Dosage: 30 MG, EVERY NIGHT AS NEEDED
  9. THORAZINE [Concomitant]
     Dosage: 25 MG, AS NEEDED
  10. FLONASE [Concomitant]
     Dosage: AS NEEDED
  11. TOPROL-XL [Concomitant]
     Dosage: 100 MG, DAILY
  12. ADVIL LIQUI-GELS [Concomitant]
     Dosage: UNK
  13. MEGACE [Concomitant]
     Dosage: UNK
  14. LEVITRA [Concomitant]
     Dosage: AS NEEDED
  15. ZESTRIL [Concomitant]
     Dosage: UNK
  16. EMEND [Concomitant]
     Dosage: UNK
  17. CAMPTOSAR [Suspect]
     Indication: OESOPHAGEAL CANCER METASTATIC
     Dosage: 100 MG, ONCE A WEEK 4 OF 6 WEEKS
     Route: 042
     Dates: start: 20101222, end: 20110216
  18. CISPLATIN [Concomitant]
     Dosage: 50 MG, WEEKLY, 4/6
  19. ATIVAN [Concomitant]
     Dosage: 1 MG, EVERY 6 HOURS AS NEEDED

REACTIONS (2)
  - ABDOMINAL PAIN [None]
  - PANCREATITIS [None]
